FAERS Safety Report 4960216-2 (Version None)
Quarter: 2006Q1

REPORT INFORMATION
  Report Type: 
  Country: None (occurrence: None)
  Receive Date: 20060328
  Receipt Date: 20060320
  Transmission Date: 20060701
  Serious: Yes (Hospitalization, Other)
  Sender: FDA-Public Use
  Company Number: 2005132505

PATIENT
  Age: 53 Year
  Sex: Male
  Weight: 108.8633 kg

DRUGS (2)
  1. CELEBREX [Suspect]
     Indication: BACK PAIN
     Dosage: 200 MG (200 MG, 1 AS NECESSARY)
     Dates: start: 20010503
  2. INSULIN [Concomitant]

REACTIONS (25)
  - ACUTE CORONARY SYNDROME [None]
  - ANGINA UNSTABLE [None]
  - AORTIC ARTERIOSCLEROSIS [None]
  - ATRIOVENTRICULAR BLOCK SECOND DEGREE [None]
  - BLOOD CHOLESTEROL INCREASED [None]
  - BLOOD TRIGLYCERIDES INCREASED [None]
  - CARDIAC DISORDER [None]
  - CAROTID ARTERY ATHEROMA [None]
  - CAROTID ARTERY STENOSIS [None]
  - CELLULITIS [None]
  - CEREBELLAR INFARCTION [None]
  - CEREBROVASCULAR ACCIDENT [None]
  - COORDINATION ABNORMAL [None]
  - CORONARY ARTERY STENOSIS [None]
  - ERECTILE DYSFUNCTION [None]
  - FAECAL INCONTINENCE [None]
  - HIGH DENSITY LIPOPROTEIN DECREASED [None]
  - INFECTED SKIN ULCER [None]
  - INJURY [None]
  - MYOCARDIAL INFARCTION [None]
  - MYOCARDIAL ISCHAEMIA [None]
  - OSTEOMYELITIS [None]
  - RESPIRATORY TRACT INFECTION [None]
  - VENTRICULAR HYPERTROPHY [None]
  - WOUND INFECTION STAPHYLOCOCCAL [None]
